FAERS Safety Report 14685135 (Version 1)
Quarter: 2018Q1

REPORT INFORMATION
  Report Type: Spontaneous
  Country: US (occurrence: US)
  Receive Date: 20180327
  Receipt Date: 20180327
  Transmission Date: 20180509
  Serious: No
  Sender: FDA-Public Use
  Company Number: US-SEBELA IRELAND LIMITED-2017SEB00448

PATIENT
  Age: 31 Year
  Sex: Female
  Weight: 67.12 kg

DRUGS (6)
  1. NAFTIN [Suspect]
     Active Substance: NAFTIFINE HYDROCHLORIDE
     Dosage: UNK UNK, 1X/DAY
     Route: 061
     Dates: start: 2017, end: 2017
  2. NAFTIN [Suspect]
     Active Substance: NAFTIFINE HYDROCHLORIDE
     Indication: ONYCHOMYCOSIS
     Dosage: UNK, 1X/DAY
     Route: 061
     Dates: start: 201610, end: 201612
  3. NAFTIN [Suspect]
     Active Substance: NAFTIFINE HYDROCHLORIDE
     Dosage: UNK
  4. LEVOTHYROXINE. [Concomitant]
     Active Substance: LEVOTHYROXINE
     Dosage: 50 ?G, 1X/DAY
  5. NAFTIN [Suspect]
     Active Substance: NAFTIFINE HYDROCHLORIDE
     Dosage: UNK, 1X/DAY
     Route: 061
     Dates: start: 20171019, end: 20171019
  6. NAFTIN [Suspect]
     Active Substance: NAFTIFINE HYDROCHLORIDE
     Dosage: UNK, 1X/WEEK
     Route: 061
     Dates: start: 2017, end: 2017

REACTIONS (6)
  - Purulence [Not Recovered/Not Resolved]
  - Pruritus [Not Recovered/Not Resolved]
  - Erythema [Not Recovered/Not Resolved]
  - Inflammation [Not Recovered/Not Resolved]
  - Feeling hot [Not Recovered/Not Resolved]
  - Skin fissures [Unknown]

NARRATIVE: CASE EVENT DATE: 20171020
